FAERS Safety Report 6789071-5 (Version None)
Quarter: 2010Q2

REPORT INFORMATION
  Report Type: 
  Country: None (occurrence: None)
  Receive Date: 20100623
  Receipt Date: 20080705
  Transmission Date: 20101027
  Serious: Yes (Hospitalization, Other)
  Sender: FDA-Public Use
  Company Number: US-PFIZER INC-2008046886

PATIENT
  Sex: Female
  Weight: 63.5 kg

DRUGS (5)
  1. GEODON [Suspect]
     Indication: BIPOLAR DISORDER
     Route: 048
     Dates: start: 20071019, end: 20080608
  2. ABILIFY [Concomitant]
  3. TOPAMAX [Concomitant]
  4. LAMICTAL [Concomitant]
  5. ZYPREXA [Concomitant]
     Dosage: 2-3 TIMES PER WEEK

REACTIONS (2)
  - ATRIAL FIBRILLATION [None]
  - TACHYCARDIA [None]
